FAERS Safety Report 8394540-0 (Version None)
Quarter: 2012Q2

REPORT INFORMATION
  Report Type: 
  Country: None (occurrence: None)
  Receive Date: 20120530
  Receipt Date: 20120525
  Transmission Date: 20120825
  Serious: Yes (Hospitalization, Other)
  Sender: FDA-Public Use
  Company Number: PHHY2012TW041988

PATIENT
  Sex: Female
  Weight: 60.9 kg

DRUGS (2)
  1. TASIGNA [Suspect]
     Indication: CHRONIC MYELOID LEUKAEMIA
     Dosage: 400 MG, BID
     Route: 048
  2. TASIGNA [Suspect]
     Dosage: 600 MG, QD
     Route: 048
     Dates: start: 20090527

REACTIONS (11)
  - PYREXIA [None]
  - LUNG INFILTRATION [None]
  - WHEEZING [None]
  - PNEUMONIA [None]
  - LUNG NEOPLASM [None]
  - PANCYTOPENIA [None]
  - SPINAL CORD NEOPLASM [None]
  - C-REACTIVE PROTEIN INCREASED [None]
  - SPONDYLOLISTHESIS [None]
  - COUGH [None]
  - TACHYPNOEA [None]
